FAERS Safety Report 7291484-2 (Version None)
Quarter: 2011Q1

REPORT INFORMATION
  Report Type: 
  Country: None (occurrence: None)
  Receive Date: 20110214
  Receipt Date: 20110208
  Transmission Date: 20110831
  Serious: Yes (Life-Threatening)
  Sender: FDA-Public Use
  Company Number: US-ASTRAZENECA-2011SE06936

PATIENT
  Age: 62 Year
  Sex: Male

DRUGS (2)
  1. TOPROL-XL [Suspect]
     Route: 048
  2. LISINOPRIL [Suspect]
     Route: 048

REACTIONS (5)
  - BLOOD PRESSURE DECREASED [None]
  - TERMINAL STATE [None]
  - STAPHYLOCOCCAL INFECTION [None]
  - DRUG DOSE OMISSION [None]
  - STENT PLACEMENT [None]
